FAERS Safety Report 6851840-0 (Version None)
Quarter: 2010Q3

REPORT INFORMATION
  Report Type: 
  Country: None (occurrence: None)
  Receive Date: 20100717
  Receipt Date: 20071031
  Transmission Date: 20110219
  Serious: No
  Sender: FDA-Public Use
  Company Number: US-PFIZER INC-2007092947

PATIENT
  Sex: Female
  Weight: 72.727 kg

DRUGS (7)
  1. CHANTIX [Suspect]
     Indication: SMOKING CESSATION THERAPY
     Dates: start: 20071001
  2. ATACAND [Concomitant]
  3. PROZAC [Concomitant]
  4. TRILEPTAL [Concomitant]
  5. PRILOSEC [Concomitant]
  6. METHADONE HCL [Concomitant]
  7. OXYCODONE HCL [Concomitant]

REACTIONS (3)
  - DIZZINESS [None]
  - HEADACHE [None]
  - NAUSEA [None]
